FAERS Safety Report 5728674-3 (Version None)
Quarter: 2008Q2

REPORT INFORMATION
  Report Type: 
  Country: None (occurrence: None)
  Receive Date: 20080430
  Receipt Date: 20080110
  Transmission Date: 20081010
  Serious: No
  Sender: FDA-Public Use
  Company Number: 2008PV033932

PATIENT
  Age: 72 Year
  Sex: Female
  Weight: 112.0385 kg

DRUGS (4)
  1. SYMLIN [Suspect]
     Indication: TYPE 2 DIABETES MELLITUS
     Dosage: 120 MCG;BID;SC,60 MCG;BID;SC,15 MCG;BID;SC
     Route: 058
     Dates: start: 20071101, end: 20071101
  2. SYMLIN [Suspect]
     Indication: TYPE 2 DIABETES MELLITUS
     Dosage: 120 MCG;BID;SC,60 MCG;BID;SC,15 MCG;BID;SC
     Route: 058
     Dates: start: 20071114, end: 20071101
  3. SYMLIN [Suspect]
     Indication: TYPE 2 DIABETES MELLITUS
     Dosage: 120 MCG;BID;SC,60 MCG;BID;SC,15 MCG;BID;SC
     Route: 058
     Dates: start: 20071101, end: 20071127
  4. INSULIN [Concomitant]

REACTIONS (1)
  - NAUSEA [None]
